FAERS Safety Report 14527781 (Version 3)
Quarter: 2018Q4

REPORT INFORMATION
  Report Type: Report from Study
  Country: CA (occurrence: CA)
  Receive Date: 20180213
  Receipt Date: 20181112
  Transmission Date: 20190204
  Serious: Yes (Other)
  Sender: FDA-Public Use
  Company Number: CA-BRISTOL-MYERS SQUIBB COMPANY-BMS-2017-082411

PATIENT
  Sex: Female

DRUGS (1)
  1. ABATACEPT [Suspect]
     Active Substance: ABATACEPT
     Indication: RHEUMATOID ARTHRITIS
     Dosage: 750 MG, Q4WK
     Route: 042
     Dates: start: 20100506

REACTIONS (6)
  - Diverticulitis [Unknown]
  - Cough [Recovered/Resolved]
  - Diverticulum oesophageal [Unknown]
  - Joint swelling [Unknown]
  - Oral pain [Recovering/Resolving]
  - Nasopharyngitis [Unknown]
